FAERS Safety Report 4293446-6 (Version None)
Quarter: 2004Q1

REPORT INFORMATION
  Report Type: 
  Country: None (occurrence: None)
  Receive Date: 20040211
  Receipt Date: 20040211
  Transmission Date: 20041129
  Serious: No
  Sender: FDA-Public Use
  Company Number: None

PATIENT
  Age: 64 Year
  Weight: 81.6475 kg

DRUGS (2)
  1. CATAPRES [Suspect]
     Indication: BLOOD PRESSURE
     Dosage: ONCE A WEEK
  2. LABETALOL HCL [Suspect]
     Indication: BLOOD PRESSURE
     Dosage: 1 DAY ORALLY
     Route: 048

REACTIONS (2)
  - HYPERTENSION [None]
  - PHARMACEUTICAL PRODUCT COMPLAINT [None]
